FAERS Safety Report 8319680-3 (Version None)
Quarter: 2012Q2

REPORT INFORMATION
  Report Type: 
  Country: None (occurrence: None)
  Receive Date: 20120427
  Receipt Date: 20120221
  Transmission Date: 20120825
  Serious: Yes (Hospitalization, Other)
  Sender: FDA-Public Use
  Company Number: IN-ROXANE LABORATORIES, INC.-2012-EU-01043GD

PATIENT
  Age: 50 Year
  Sex: Male

DRUGS (8)
  1. METFORMIN HCL [Concomitant]
     Dosage: 1000 MG
  2. SERTRALINE HYDROCHLORIDE [Suspect]
     Indication: DEPRESSION
     Dosage: 50 MG
  3. ELTROXINE [Concomitant]
     Dosage: 50 MCG
  4. SERTRALINE HYDROCHLORIDE [Suspect]
     Dosage: 200 MG
  5. VENLAFAXINE [Suspect]
     Indication: DEPRESSION
     Dosage: 75 MG
  6. SERTRALINE HYDROCHLORIDE [Suspect]
     Dosage: 150 MG
  7. ANTIDIABETIC MEDICATION [Concomitant]
     Indication: TYPE 2 DIABETES MELLITUS
  8. ATORVASTATIN [Concomitant]
     Dosage: 10 MG

REACTIONS (4)
  - SEROTONIN SYNDROME [None]
  - NO THERAPEUTIC RESPONSE [None]
  - BLOOD GLUCOSE FLUCTUATION [None]
  - DEPRESSION [None]
